FAERS Safety Report 19821279 (Version 1)
Quarter: 2021Q3

REPORT INFORMATION
  Report Type: Spontaneous
  Country: US (occurrence: US)
  Receive Date: 20210913
  Receipt Date: 20210913
  Transmission Date: 20211014
  Serious: Yes (Other)
  Sender: FDA-Public Use
  Company Number: None

PATIENT
  Age: 27 Year
  Sex: Female
  Weight: 46.35 kg

DRUGS (1)
  1. REGEN?COV [Suspect]
     Active Substance: CASIRIVIMAB\IMDEVIMAB
     Indication: COVID-19
     Route: 042
     Dates: start: 20210910, end: 20210910

REACTIONS (8)
  - Swelling face [None]
  - Burning sensation [None]
  - Rash pruritic [None]
  - Peripheral swelling [None]
  - Lip swelling [None]
  - Swelling [None]
  - Ear swelling [None]
  - Eye swelling [None]

NARRATIVE: CASE EVENT DATE: 20210910
